FAERS Safety Report 6402446-9 (Version None)
Quarter: 2009Q4

REPORT INFORMATION
  Report Type: 
  Country: None (occurrence: None)
  Receive Date: 20091015
  Receipt Date: 20091007
  Transmission Date: 20100525
  Serious: Yes (Hospitalization)
  Sender: FDA-Public Use
  Company Number: US-ELI_LILLY_AND_COMPANY-US200910001595

PATIENT
  Sex: Female

DRUGS (7)
  1. HUMULIN 70/30 [Suspect]
     Indication: DIABETES MELLITUS
     Dosage: 55 U, 2/D
  2. PROZAC [Suspect]
  3. ZYRTEC [Concomitant]
  4. DEPAKOTE [Concomitant]
  5. ENALAPRIL MALEATE [Concomitant]
  6. ZOCOR [Concomitant]
  7. GEODON [Concomitant]

REACTIONS (2)
  - AGGRESSION [None]
  - INCORRECT PRODUCT STORAGE [None]
